FAERS Safety Report 8593515-6 (Version None)
Quarter: 2012Q3

REPORT INFORMATION
  Report Type: 
  Country: None (occurrence: None)
  Receive Date: 20120814
  Receipt Date: 20120802
  Transmission Date: 20120928
  Serious: Yes (Death, Other)
  Sender: FDA-Public Use
  Company Number: FR-ELI_LILLY_AND_COMPANY-FR201208000666

PATIENT
  Sex: Female

DRUGS (15)
  1. CYMBALTA [Suspect]
     Indication: ANXIETY
     Dosage: 60 MG, QD
     Route: 048
     Dates: start: 20120626, end: 20120629
  2. ASPIRIN [Concomitant]
  3. ALPRAZOLAM [Concomitant]
  4. ACETAMINOPHEN [Concomitant]
  5. NEXIUM [Concomitant]
  6. FUROSEMIDE [Concomitant]
  7. LOVENOX [Concomitant]
     Indication: PROPHYLAXIS
     Dosage: 4000 IU, UNKNOWN
     Route: 058
     Dates: start: 20120618, end: 20120629
  8. CALCIUM CARBONATE [Concomitant]
  9. TRAMADOL HCL [Concomitant]
  10. POTASSIUM CHLORIDE [Concomitant]
  11. ROCEPHIN [Concomitant]
     Indication: LUNG INFECTION
     Dosage: 1 G, QD
     Route: 058
     Dates: start: 20120618, end: 20120629
  12. OXYCODONE HYDROCHLORIDE [Concomitant]
     Indication: ABDOMINAL PAIN
     Dosage: 5 MG, QD
     Route: 048
     Dates: start: 20120618, end: 20120629
  13. TRANSIPEG [Concomitant]
  14. GAVISCON [Concomitant]
  15. FOLIC ACID [Concomitant]
     Indication: FOLATE DEFICIENCY
     Dosage: 1 DF, UNKNOWN
     Route: 048
     Dates: start: 20120619, end: 20120629

REACTIONS (6)
  - DUODENITIS [None]
  - SOMNOLENCE [None]
  - OCULAR ICTERUS [None]
  - GASTRITIS [None]
  - PYREXIA [None]
  - HEPATOCELLULAR INJURY [None]
